FAERS Safety Report 8187156-2 (Version None)
Quarter: 2012Q1

REPORT INFORMATION
  Report Type: 
  Country: None (occurrence: None)
  Receive Date: 20120306
  Receipt Date: 20120229
  Transmission Date: 20120608
  Serious: Yes (Hospitalization, Other)
  Sender: FDA-Public Use
  Company Number: US-AMGEN-USASP2011029277

PATIENT
  Age: 62 Year
  Sex: Female

DRUGS (3)
  1. ENBREL [Suspect]
     Indication: RHEUMATOID ARTHRITIS
     Dosage: 50 MG, QWK
     Dates: start: 20060101
  2. ENBREL [Suspect]
     Indication: PSORIATIC ARTHROPATHY
  3. ENBREL [Suspect]
     Indication: PSORIASIS

REACTIONS (16)
  - ROTATOR CUFF SYNDROME [None]
  - ABNORMAL BEHAVIOUR [None]
  - MUSCLE RUPTURE [None]
  - LYMPHOEDEMA [None]
  - CATARACT [None]
  - MEMORY IMPAIRMENT [None]
  - FALL [None]
  - BACK PAIN [None]
  - PAIN [None]
  - INJECTION SITE PAIN [None]
  - CONCUSSION [None]
  - MYALGIA [None]
  - GLAUCOMA [None]
  - NECK PAIN [None]
  - ROAD TRAFFIC ACCIDENT [None]
  - MUSCULOSKELETAL PAIN [None]
